FAERS Safety Report 7320152-3 (Version None)
Quarter: 2011Q1

REPORT INFORMATION
  Report Type: 
  Country: None (occurrence: None)
  Receive Date: 20110223
  Receipt Date: 20110223
  Transmission Date: 20110831
  Serious: Yes (Other)
  Sender: FDA-Public Use
  Company Number: None

PATIENT
  Sex: Female
  Weight: 68.0396 kg

DRUGS (1)
  1. EFFEXOR XR [Suspect]

REACTIONS (5)
  - SUICIDAL IDEATION [None]
  - CONDITION AGGRAVATED [None]
  - DEPRESSION [None]
  - PRODUCT SUBSTITUTION ISSUE [None]
  - PSYCHIATRIC DECOMPENSATION [None]
